FAERS Safety Report 7206633-1 (Version None)
Quarter: 2011Q1

REPORT INFORMATION
  Report Type: 
  Country: None (occurrence: None)
  Receive Date: 20110103
  Receipt Date: 20101227
  Transmission Date: 20110831
  Serious: Yes (Hospitalization)
  Sender: FDA-Public Use
  Company Number: FR-JNJFOC-20101208664

PATIENT
  Sex: Male

DRUGS (9)
  1. XATRAL [Concomitant]
     Route: 048
  2. FENOFIBRATE [Concomitant]
     Route: 048
  3. MODOPAR [Concomitant]
     Indication: PARKINSON'S DISEASE
     Dosage: 250 SIX A DAY (1.5-1.5-1.5-1.5)
     Route: 048
  4. DOLIPRAN [Concomitant]
     Route: 048
  5. HALDOL [Suspect]
     Indication: HALLUCINATION
     Dosage: 2 MG/ML
     Route: 048
     Dates: start: 20101018, end: 20101108
  6. LYSANXIA [Concomitant]
     Indication: AGITATION
     Route: 048
     Dates: end: 20101108
  7. HALDOL [Suspect]
     Indication: DELIRIUM
     Dosage: 2 MG/ML
     Route: 048
     Dates: start: 20101018, end: 20101108
  8. CACIT D3 [Concomitant]
     Route: 048
  9. COMTAN [Concomitant]
     Indication: PARKINSON'S DISEASE
     Dosage: 200 MG
     Route: 065

REACTIONS (4)
  - GAIT DISTURBANCE [None]
  - MUSCULAR WEAKNESS [None]
  - MUSCULOSKELETAL STIFFNESS [None]
  - EXTRAPYRAMIDAL DISORDER [None]
